FAERS Safety Report 17146732 (Version 1)
Quarter: 2019Q4

REPORT INFORMATION
  Report Type: Spontaneous
  Country: FR (occurrence: FR)
  Receive Date: 20191212
  Receipt Date: 20191212
  Transmission Date: 20200122
  Serious: Yes (Other)
  Sender: FDA-Public Use
  Company Number: FR-MYLANLABS-2019M1123774

PATIENT
  Age: 77 Year
  Sex: Male

DRUGS (4)
  1. ACICLOVIR [Suspect]
     Active Substance: ACYCLOVIR
     Indication: VARICELLA ZOSTER VIRUS INFECTION
  2. METHYLPREDNISOLONE. [Suspect]
     Active Substance: METHYLPREDNISOLONE
     Indication: VARICELLA ZOSTER VIRUS INFECTION
  3. ACICLOVIR [Suspect]
     Active Substance: ACYCLOVIR
     Indication: MYELITIS TRANSVERSE
     Dosage: 700 MG EVERY 8 H (10 MG/KG)
     Route: 042
  4. METHYLPREDNISOLONE. [Suspect]
     Active Substance: METHYLPREDNISOLONE
     Indication: MYELITIS TRANSVERSE
     Dosage: 1 GRAM, QD
     Route: 048

REACTIONS (1)
  - Therapy non-responder [Unknown]
